FAERS Safety Report 4541869-X (Version None)
Quarter: 2004Q4

REPORT INFORMATION
  Report Type: 
  Country: None (occurrence: None)
  Receive Date: 20041227
  Receipt Date: 20041213
  Transmission Date: 20050328
  Serious: Yes (Other)
  Sender: FDA-Public Use
  Company Number: 2004110659

PATIENT
  Age: 37 Year
  Sex: Female

DRUGS (2)
  1. AZITHROMYCIN [Suspect]
     Indication: PHARYNGITIS
  2. IBUPROFEN [Suspect]
     Indication: PHARYNGITIS

REACTIONS (7)
  - ALLERGIC GRANULOMATOUS ANGIITIS [None]
  - HAEMATURIA [None]
  - PERICARDIAL EFFUSION [None]
  - PHARYNGITIS [None]
  - POLYNEUROPATHY [None]
  - SINUS POLYP [None]
  - SINUSITIS [None]
